FAERS Safety Report 17748645 (Version 1)
Quarter: 2020Q2

REPORT INFORMATION
  Report Type: Spontaneous
  Country: US (occurrence: US)
  Receive Date: 20200505
  Receipt Date: 20200505
  Transmission Date: 20200714
  Serious: No
  Sender: FDA-Public Use
  Company Number: US-ROCHE-2467792

PATIENT
  Sex: Female

DRUGS (5)
  1. VITAMIN D3 [Concomitant]
     Active Substance: CHOLECALCIFEROL
     Dosage: 5000 UNIT
     Route: 065
  2. ESBRIET [Suspect]
     Active Substance: PIRFENIDONE
     Indication: IDIOPATHIC PULMONARY FIBROSIS
     Dosage: TAKE 2 CAPSULES PO TID WITH FOOD
     Route: 048
     Dates: start: 2017
  3. IBUPROFEN. [Concomitant]
     Active Substance: IBUPROFEN
     Route: 065
  4. OXYBUTYNIN. [Concomitant]
     Active Substance: OXYBUTYNIN CHLORIDE
     Dosage: OXYBUTYNIN C
     Route: 065
  5. VALSARTAN. [Concomitant]
     Active Substance: VALSARTAN
     Route: 065

REACTIONS (7)
  - Abdominal discomfort [Recovered/Resolved]
  - Intentional product use issue [Unknown]
  - Nausea [Not Recovered/Not Resolved]
  - Decreased appetite [Recovered/Resolved]
  - Off label use [Unknown]
  - Nasopharyngitis [Recovered/Resolved]
  - Constipation [Not Recovered/Not Resolved]
